FAERS Safety Report 5909876-X (Version None)
Quarter: 2008Q4

REPORT INFORMATION
  Report Type: 
  Country: None (occurrence: None)
  Receive Date: 20081003
  Receipt Date: 20081003
  Transmission Date: 20090506
  Serious: Yes (Hospitalization)
  Sender: FDA-Public Use
  Company Number: None

PATIENT
  Age: 92 Year
  Sex: Male
  Weight: 83 kg

DRUGS (2)
  1. ZOLPIDEM [Suspect]
     Indication: INSOMNIA
     Dosage: 10 MG EVERY DAY PO
     Route: 048
     Dates: start: 20070924, end: 20080915
  2. ACETAMINOPHEN AND HYDROCODONE BITARTRATE [Suspect]
     Indication: NECK PAIN
     Dosage: 1 TAB MG BID PO
     Route: 048
     Dates: start: 20070924, end: 20080915

REACTIONS (3)
  - CONFUSIONAL STATE [None]
  - HALLUCINATION [None]
  - MENTAL STATUS CHANGES [None]
